FAERS Safety Report 11094592 (Version 4)
Quarter: 2015Q2

REPORT INFORMATION
  Report Type: Spontaneous
  Country: US (occurrence: US)
  Receive Date: 20150506
  Receipt Date: 20150624
  Transmission Date: 20150821
  Serious: No
  Sender: FDA-Public Use
  Company Number: US-PFIZER INC-2015146137

PATIENT
  Age: 64 Year
  Sex: Female
  Weight: 92 kg

DRUGS (25)
  1. TOFRANIL [Concomitant]
     Active Substance: IMIPRAMINE HYDROCHLORIDE
     Dosage: 25 MG, 1X/DAY (IN THE EVENING)
     Route: 048
  2. PRILOSEC [Concomitant]
     Active Substance: OMEPRAZOLE MAGNESIUM
     Dosage: UNK, AS NEEDED
     Route: 048
  3. FLONASE [Concomitant]
     Active Substance: FLUTICASONE PROPIONATE
     Dosage: 100 ?G, 1X/DAY (SHAKE WELL BEFORE USE; ALTERNATE NOSTRILS WITH EACH SPRAY)
     Route: 045
  4. GLUCOPHAGE [Concomitant]
     Active Substance: METFORMIN HYDROCHLORIDE
     Dosage: 500 MG, 2X/DAY (WITH FOOD)
     Route: 048
  5. PRINIVIL [Concomitant]
     Active Substance: LISINOPRIL
     Dosage: 10 MG, 1X/DAY
     Route: 048
  6. CLARITIN [Concomitant]
     Active Substance: LORATADINE
     Dosage: 10 MG, 1X/DAY (TAKE ON AN EMPTY STOMACH)
     Route: 048
  7. VITAMIN D3 [Concomitant]
     Active Substance: CHOLECALCIFEROL
     Dosage: 5000 IU, 1X/DAY
     Route: 048
  8. PRILOSEC [Concomitant]
     Active Substance: OMEPRAZOLE MAGNESIUM
     Dosage: 20 MG, 1X/DAY AS NEEDED BEFORE MEALS
     Route: 048
  9. NAPROXEN SODIUM. [Concomitant]
     Active Substance: NAPROXEN SODIUM
     Dosage: 440 MG, AS NEEDED (EVERY 8-12 HOURS AS NEEDED)
  10. FISH OIL [Concomitant]
     Active Substance: FISH OIL
     Dosage: 1000 MG, 1X/DAY
  11. NORCO [Concomitant]
     Active Substance: ACETAMINOPHEN\HYDROCODONE BITARTRATE
     Indication: PAIN
     Dosage: [HYDROCODONE BITARTRATE 5MG]/[PARACETAMOL 325MG], 1-2 TABS EVERY SIX HOURS AS NEEDED
     Route: 048
  12. SIMETHICONE [Concomitant]
     Active Substance: DIMETHICONE\SILICON DIOXIDE\SIMETHICONE
     Dosage: 80 MG, AS NEEDED (80 TO 120 MG AS NEEDED)
  13. AYR SALINE [Concomitant]
     Dosage: USE 3-4 TIMES A DAY AS NEEDED
     Route: 045
  14. ZESTRIL [Concomitant]
     Active Substance: LISINOPRIL
     Dosage: 10 MG, 1X/DAY
     Route: 048
  15. KENALOG [Concomitant]
     Active Substance: TRIAMCINOLONE ACETONIDE
     Dosage: 0.1 %, 2X/DAY (APPLY TO THE AFFECTED AREAS 2 TIMES DAILY AS NEEDED SPARINGLY)
  16. OCUVITE [Concomitant]
     Active Substance: VITAMINS
     Dosage: 1 DF, 1X/DAY
     Route: 048
  17. LYRICA [Suspect]
     Active Substance: PREGABALIN
     Indication: FIBROMYALGIA
     Dosage: 50MG, 3 IN AM, 4 IN MID PM, 4 IN PM
     Dates: end: 201503
  18. CELEXA [Concomitant]
     Active Substance: CITALOPRAM HYDROBROMIDE
     Dosage: 20 MG, 1X/DAY BED TIME
     Route: 048
  19. PRILOSEC [Concomitant]
     Active Substance: OMEPRAZOLE MAGNESIUM
     Dosage: 20 MG, 2X/DAY
     Route: 048
  20. CLARITIN [Concomitant]
     Active Substance: LORATADINE
     Dosage: UNK, AS NEEDED
     Route: 048
  21. LYRICA [Suspect]
     Active Substance: PREGABALIN
     Indication: PAIN
  22. TENORMIN [Concomitant]
     Active Substance: ATENOLOL
     Dosage: 50 MG, 1X/DAY BEDTIME
     Route: 048
  23. 0.5 % LIDOCAINE [Concomitant]
     Dosage: 0.5 %, AS NEEDED (UP TO 3 TIMES A DAY AS NEEDED)
     Route: 061
  24. FLONASE [Concomitant]
     Active Substance: FLUTICASONE PROPIONATE
     Dosage: UNK, AS NEEDED
     Route: 045
  25. FLUORIDE [Concomitant]
     Active Substance: SODIUM FLUORIDE
     Dosage: 100 ?G, 1X/DAY (SHAKE WELL BEFORE USE; ALTERNATE NOSTRILS WITH EACH SPRAY)
     Route: 045

REACTIONS (2)
  - Weight decreased [Unknown]
  - Arthralgia [Not Recovered/Not Resolved]

NARRATIVE: CASE EVENT DATE: 20150317
